FAERS Safety Report 10764007 (Version 1)
Quarter: 2015Q1

REPORT INFORMATION
  Report Type: Spontaneous
  Country: ES (occurrence: ES)
  Receive Date: 20150204
  Receipt Date: 20150204
  Transmission Date: 20150721
  Serious: Yes (Death)
  Sender: FDA-Public Use
  Company Number: ES-ABBVIE-15P-144-1342424-00

PATIENT
  Age: 5 Year
  Sex: Male

DRUGS (6)
  1. AMOXICILLIN. [Suspect]
     Active Substance: AMOXICILLIN
     Indication: RESPIRATORY TRACT INFECTION
     Route: 048
     Dates: start: 20141203, end: 20141203
  2. INVEGA [Suspect]
     Active Substance: PALIPERIDONE
     Indication: ABNORMAL BEHAVIOUR
     Dosage: EXTENDED RELEASE
     Route: 048
     Dates: start: 20141119, end: 20141203
  3. NOIAFREN [Suspect]
     Active Substance: CLOBAZAM
     Indication: PRODUCT USED FOR UNKNOWN INDICATION
     Route: 048
     Dates: start: 201406, end: 20141203
  4. SALBUTAMOL [Suspect]
     Active Substance: ALBUTEROL
     Indication: COUGH
     Route: 065
     Dates: start: 20141203, end: 20141203
  5. TOSEINA [Suspect]
     Active Substance: CODEINE PHOSPHATE
     Indication: PRODUCT USED FOR UNKNOWN INDICATION
     Route: 048
     Dates: start: 20141203, end: 20141203
  6. VALPROIC ACID. [Suspect]
     Active Substance: VALPROIC ACID
     Indication: EPILEPSY
     Route: 048
     Dates: start: 2012, end: 20141203

REACTIONS (3)
  - Drug administered to patient of inappropriate age [Fatal]
  - Cardio-respiratory arrest [None]
  - Sudden death [Fatal]

NARRATIVE: CASE EVENT DATE: 20141203
